FAERS Safety Report 11137965 (Version 2)
Quarter: 2016Q1

REPORT INFORMATION
  Report Type: Spontaneous
  Country: US (occurrence: US)
  Receive Date: 20150526
  Receipt Date: 20160222
  Transmission Date: 20160525
  Serious: Yes (Hospitalization, Other)
  Sender: FDA-Public Use
  Company Number: US-ENDO PHARMACEUTICALS INC.-201409147

PATIENT
  Age: 63 Year
  Sex: Male
  Weight: 102.15 kg

DRUGS (2)
  1. ASPIRIN. [Concomitant]
     Active Substance: ASPIRIN
     Indication: PRODUCT USED FOR UNKNOWN INDICATION
     Route: 065
  2. TESTIM [Suspect]
     Active Substance: TESTOSTERONE
     Indication: HYPOGONADISM
     Route: 062
     Dates: start: 2008, end: 20120920

REACTIONS (11)
  - Anhedonia [Unknown]
  - Syncope [Unknown]
  - Acute myocardial infarction [Not Recovered/Not Resolved]
  - Arrhythmia [Unknown]
  - Anxiety [Unknown]
  - Fear [Unknown]
  - Cardiac steatosis [Unknown]
  - Emotional distress [Unknown]
  - Depression [Unknown]
  - Coronary artery disease [Not Recovered/Not Resolved]
  - Cardiac failure congestive [Unknown]

NARRATIVE: CASE EVENT DATE: 2012
